FAERS Safety Report 17234040 (Version 1)
Quarter: 2020Q1

REPORT INFORMATION
  Report Type: Spontaneous
  Country: US (occurrence: US)
  Receive Date: 20200106
  Receipt Date: 20200106
  Transmission Date: 20200409
  Serious: No
  Sender: FDA-Public Use
  Company Number: US-UCBSA-2014006665

PATIENT

DRUGS (2)
  1. CIMZIA [Suspect]
     Active Substance: CERTOLIZUMAB PEGOL
     Dosage: UNKNOWN DOSE
  2. REMICADE [Concomitant]
     Active Substance: INFLIXIMAB
     Dosage: UNKNOWN DOSE

REACTIONS (1)
  - Drug hypersensitivity [Unknown]
